FAERS Safety Report 9605682 (Version 1)
Quarter: 2013Q4

REPORT INFORMATION
  Report Type: Spontaneous
  Country: FR (occurrence: FR)
  Receive Date: 20131008
  Receipt Date: 20131008
  Transmission Date: 20140711
  Serious: Yes (Life-Threatening)
  Sender: FDA-Public Use
  Company Number: FR-TEVA-435013ISR

PATIENT
  Age: 57 Year
  Sex: Male

DRUGS (6)
  1. RAMIPRIL TEVA 5 MG [Suspect]
     Indication: HYPERTENSION
     Dosage: 5 MILLIGRAM DAILY; LONG TERM TREATMENT
     Route: 048
     Dates: end: 20130319
  2. REYATAZ 300 MG [Suspect]
     Indication: HIV INFECTION
     Dosage: 1 DOSAGE FORMS DAILY;
     Route: 048
     Dates: start: 20070122, end: 20130319
  3. TRUVADA 200 MG/245 MG [Suspect]
     Indication: HIV INFECTION
     Dosage: 1 DOSAGE FORMS DAILY;
     Route: 048
     Dates: start: 20061120, end: 20130319
  4. NORVIR 100 MG [Concomitant]
     Dosage: 1 DOSAGE FORMS DAILY; LONG TERM TREATMENT
     Route: 048
  5. DITROPAN 5 MG [Concomitant]
     Dosage: 3 DOSAGE FORMS DAILY; LONG TERM TREATMENT
     Route: 048
  6. DAFLON 500 MG [Concomitant]
     Dosage: 2 DOSAGE FORMS DAILY; LONG TERM TREATMENT
     Route: 048

REACTIONS (1)
  - Renal failure acute [Recovered/Resolved]
